FAERS Safety Report 5554568-2 (Version None)
Quarter: 2007Q4

REPORT INFORMATION
  Report Type: 
  Country: None (occurrence: None)
  Receive Date: 20071213
  Receipt Date: 20071126
  Transmission Date: 20080405
  Serious: Yes (Hospitalization)
  Sender: FDA-Public Use
  Company Number: US-BAYER-200714826NA

PATIENT
  Age: 33 Year
  Sex: Female

DRUGS (3)
  1. BETASERON [Suspect]
     Indication: RELAPSING-REMITTING MULTIPLE SCLEROSIS
     Dosage: UNIT DOSE: 8 MIU
     Route: 058
     Dates: start: 20071011
  2. FIORICET [Concomitant]
     Indication: HEADACHE
     Dates: start: 20070101
  3. NAPROSYN [Concomitant]
     Indication: HEADACHE
     Dates: start: 20070101

REACTIONS (1)
  - MIGRAINE [None]
